FAERS Safety Report 16384134 (Version 2)
Quarter: 2019Q2

REPORT INFORMATION
  Report Type: Spontaneous
  Country: JP (occurrence: JP)
  Receive Date: 20190603
  Receipt Date: 20190621
  Transmission Date: 20190711
  Serious: Yes (Hospitalization, Other)
  Sender: FDA-Public Use
  Company Number: JP-PFIZER INC-2019225912

PATIENT
  Age: 83 Year
  Sex: Male
  Weight: 65 kg

DRUGS (11)
  1. LYRICA [Suspect]
     Active Substance: PREGABALIN
     Indication: PAIN IN EXTREMITY
     Dosage: 100 MG, 2X/DAY
     Route: 048
     Dates: start: 20190322, end: 20190510
  2. TAKECAB [Concomitant]
     Active Substance: VONOPRAZAN FUMURATE
     Dosage: UNK
     Dates: start: 20190322
  3. TRAMCET [Suspect]
     Active Substance: ACETAMINOPHEN\TRAMADOL
     Indication: PAIN IN EXTREMITY
     Dosage: 3 DF, 3X/DAY
     Route: 048
     Dates: start: 20190329, end: 20190510
  4. BASEN [VOGLIBOSE] [Concomitant]
     Dosage: UNK
     Route: 048
  5. CELECOX [Concomitant]
     Active Substance: CELECOXIB
     Dosage: UNK
     Dates: start: 20190322
  6. LIPITOR [Concomitant]
     Active Substance: ATORVASTATIN CALCIUM
     Dosage: UNK
     Route: 048
  7. ATELEC [Concomitant]
     Active Substance: CILNIDIPINE
     Dosage: UNK
     Route: 048
  8. MAINTATE [Concomitant]
     Active Substance: BISOPROLOL FUMARATE
     Dosage: UNK
     Route: 048
  9. TRAZENTA [Concomitant]
     Active Substance: LINAGLIPTIN
     Dosage: UNK
     Route: 048
  10. PANALDINE [Concomitant]
     Active Substance: TICLOPIDINE HYDROCHLORIDE
     Dosage: UNK
     Route: 048
  11. EPADEL-S [Concomitant]
     Active Substance: ICOSAPENT ETHYL
     Dosage: UNK
     Route: 048

REACTIONS (6)
  - Dyspnoea [Recovering/Resolving]
  - Chest pain [Recovered/Resolved]
  - Headache [Recovered/Resolved]
  - Oedema peripheral [Recovered/Resolved]
  - Palpitations [Recovered/Resolved]
  - Cardiac failure [Recovered/Resolved]

NARRATIVE: CASE EVENT DATE: 20190401
